FAERS Safety Report 5729433-8 (Version None)
Quarter: 2008Q2

REPORT INFORMATION
  Report Type: 
  Country: None (occurrence: None)
  Receive Date: 20080501
  Receipt Date: 20080407
  Transmission Date: 20081010
  Serious: Yes (Other)
  Sender: FDA-Public Use
  Company Number: 08-042

PATIENT
  Age: 55 Year
  Sex: Female
  Weight: 58.9676 kg

DRUGS (1)
  1. CVS EXTRA ST. COLD + HOT MEDICATED PATCH 5% MENTHOL [Suspect]
     Indication: ANALGESIC THERAPY
     Dosage: TOPICAL PATCH; ONE DOSE
     Route: 061

REACTIONS (1)
  - BURNING SENSATION [None]
